FAERS Safety Report 24423801 (Version 3)
Quarter: 2025Q1

REPORT INFORMATION
  Report Type: Spontaneous
  Country: US (occurrence: US)
  Receive Date: 20241010
  Receipt Date: 20250319
  Transmission Date: 20250409
  Serious: Yes (Other)
  Sender: SANOFI AVENTIS
  Company Number: US-SA-2024SA277596

PATIENT
  Age: 84 Year
  Sex: Female

DRUGS (2)
  1. KEVZARA [Suspect]
     Active Substance: SARILUMAB
     Indication: Rheumatoid arthritis
     Dosage: 200 MG, QOW
     Route: 058
     Dates: start: 202404, end: 20250102
  2. COVID-19 VACCINE NOS [Suspect]
     Active Substance: COVID-19 VACCINE
     Indication: Immunisation
     Dates: start: 20240909

REACTIONS (5)
  - Pneumonia [Unknown]
  - Headache [Unknown]
  - Joint swelling [Unknown]
  - Condition aggravated [Unknown]
  - Dental operation [Unknown]

NARRATIVE: CASE EVENT DATE: 20240909
